FAERS Safety Report 16092696 (Version 1)
Quarter: 2019Q1

REPORT INFORMATION
  Report Type: Spontaneous
  Country: US (occurrence: US)
  Receive Date: 20190319
  Receipt Date: 20190319
  Transmission Date: 20190418
  Serious: Yes (Other)
  Sender: FDA-Public Use
  Company Number: US-MYLANLABS-2019M1023361

PATIENT

DRUGS (3)
  1. ESTRADIOL TRANSDERMAL SYSTEM [Suspect]
     Active Substance: ESTRADIOL
     Indication: DEPRESSION
     Dosage: UNK
     Route: 062
     Dates: end: 20180930
  2. LYRICA [Concomitant]
     Active Substance: PREGABALIN
     Indication: ANXIETY
     Dosage: 1 DOSAGE FORM, TID
     Route: 048
  3. LYRICA [Concomitant]
     Active Substance: PREGABALIN
     Indication: ANXIETY
     Dosage: 1 DOSAGE FORM, BID
     Route: 048

REACTIONS (4)
  - Weight increased [Unknown]
  - Breast cancer [Recovered/Resolved]
  - Therapeutic response unexpected [Unknown]
  - Off label use [Unknown]

NARRATIVE: CASE EVENT DATE: 201809
